FAERS Safety Report 9958615 (Version 1)
Quarter: 2014Q1

REPORT INFORMATION
  Report Type: Spontaneous
  Country: US (occurrence: None)
  Receive Date: 20140124
  Receipt Date: 20140124
  Transmission Date: 20141002
  Serious: Yes (Other)
  Sender: FDA-Public Use
  Company Number: 2011AP001575

PATIENT
  Age: 91 Year
  Sex: Male
  Weight: 73 kg

DRUGS (12)
  1. LOVASTATIN [Suspect]
     Indication: PRODUCT USED FOR UNKNOWN INDICATION
  2. DANAZOL [Suspect]
     Indication: IMMUNE THROMBOCYTOPENIC PURPURA
  3. FLUVASTATIN [Concomitant]
  4. SIMVASTATIN [Concomitant]
  5. ATORVASTATIN [Concomitant]
  6. ACETYLSALICYLIC ACID [Concomitant]
  7. CLOPIDOGREL [Concomitant]
  8. METOPROLOL [Concomitant]
  9. LISINOPRIL [Concomitant]
  10. ISOSORBIDE DINITRATE [Concomitant]
  11. LEVOTHYROXINE [Concomitant]
  12. GLIPIZIDE [Concomitant]

REACTIONS (2)
  - Rhabdomyolysis [None]
  - Drug interaction [None]
